FAERS Safety Report 6357860-7 (Version None)
Quarter: 2009Q3

REPORT INFORMATION
  Report Type: 
  Country: None (occurrence: None)
  Receive Date: 20090911
  Receipt Date: 20090827
  Transmission Date: 20100115
  Serious: Yes (Other)
  Sender: FDA-Public Use
  Company Number: DSU-2009-01558

PATIENT
  Age: 79 Year
  Sex: Female
  Weight: 97 kg

DRUGS (4)
  1. OLMESARTAN MEDOXOMIL [Suspect]
     Indication: HYPERTENSION
     Dosage: 20 MG (20 MG, QD), PER ORAL
     Route: 048
     Dates: start: 20090526, end: 20090527
  2. HYZAAR (HYDROCHLOROTHIAZIDE, LOSARTAN POTASSIUM) (TABLET) (HYDROCHLORO [Concomitant]
  3. CRESTOR (ROSUVASTATIN CALCIUM) (TABLET) (ROSUVASTATIN CALCIUM) [Concomitant]
  4. HYDROCHLOROTHIAZIDE (HYDROCHLOROTHIAZIDE) (TABLET) (HYDROCHLOROTHIAZID [Concomitant]

REACTIONS (2)
  - BEDRIDDEN [None]
  - HYPOTENSION [None]
